FAERS Safety Report 9522090 (Version 2)
Quarter: 2013Q3

REPORT INFORMATION
  Report Type: Spontaneous
  Country: FR (occurrence: FR)
  Receive Date: 20130913
  Receipt Date: 20130920
  Transmission Date: 20140515
  Serious: Yes (Hospitalization)
  Sender: FDA-Public Use
  Company Number: FR-PFIZER INC-2013260563

PATIENT
  Age: 54 Year
  Sex: Male
  Weight: 58 kg

DRUGS (1)
  1. CRIZOTINIB [Suspect]
     Indication: LUNG ADENOCARCINOMA
     Dosage: UNK
     Dates: start: 201302, end: 20130212

REACTIONS (11)
  - Malnutrition [Unknown]
  - Dyspnoea [Unknown]
  - General physical health deterioration [Unknown]
  - Infection [Unknown]
  - Nausea [Unknown]
  - Vomiting [Unknown]
  - Constipation [Unknown]
  - Pain [Unknown]
  - Myalgia [Unknown]
  - Disease progression [Unknown]
  - Lung adenocarcinoma [Unknown]
